FAERS Safety Report 18130612 (Version 1)
Quarter: 2020Q3

REPORT INFORMATION
  Report Type: Spontaneous
  Country: US (occurrence: US)
  Receive Date: 20200810
  Receipt Date: 20200810
  Transmission Date: 20201103
  Serious: Yes (Death, Hospitalization, Disabling, Other)
  Sender: FDA-Public Use
  Company Number: US-PURDUE-USA-2020-0160472

PATIENT
  Age: 42 Year
  Sex: Female

DRUGS (2)
  1. DILAUDID [Suspect]
     Active Substance: HYDROMORPHONE HYDROCHLORIDE
     Indication: PAIN MANAGEMENT
     Dosage: UNK
     Route: 048
  2. OXYCONTIN [Suspect]
     Active Substance: OXYCODONE HYDROCHLORIDE
     Indication: PAIN MANAGEMENT
     Dosage: UNK
     Route: 048

REACTIONS (9)
  - Cardio-respiratory arrest [Fatal]
  - Mental impairment [Unknown]
  - Drug dependence [Unknown]
  - Sleep disorder [Unknown]
  - Multiple organ dysfunction syndrome [Fatal]
  - Coma [Recovered/Resolved]
  - Physical disability [Unknown]
  - Impulsive behaviour [Unknown]
  - Overdose [Unknown]

NARRATIVE: CASE EVENT DATE: 201205
